FAERS Safety Report 23760856 (Version 3)
Quarter: 2025Q1

REPORT INFORMATION
  Report Type: Spontaneous
  Country: CA (occurrence: CA)
  Receive Date: 20240419
  Receipt Date: 20250123
  Transmission Date: 20250408
  Serious: Yes (Other)
  Sender: Haleon PLC
  Company Number: CA-HALEON-2168463

PATIENT
  Age: 70 Year
  Sex: Female

DRUGS (17)
  1. ADVIL [Suspect]
     Active Substance: IBUPROFEN
     Indication: Myalgia
  2. AMITRIPTYLINE [Suspect]
     Active Substance: AMITRIPTYLINE
     Indication: Myalgia
     Route: 065
  3. AMITRIPTYLINE [Suspect]
     Active Substance: AMITRIPTYLINE
     Indication: Hypertension
     Route: 065
  4. CELECOXIB [Suspect]
     Active Substance: CELECOXIB
     Indication: Product used for unknown indication
     Route: 065
  5. DICLOFENAC SODIUM [Suspect]
     Active Substance: DICLOFENAC SODIUM
     Indication: Myalgia
  6. DIPHENHYDRAMINE [Suspect]
     Active Substance: DIPHENHYDRAMINE
     Indication: Hypertension
     Route: 065
  7. PANTOPRAZOLE SODIUM ANHYDROUS [Suspect]
     Active Substance: PANTOPRAZOLE SODIUM ANHYDROUS
     Indication: Gastrointestinal disorder
     Route: 065
  8. PSEUDOEPHEDRINE [Suspect]
     Active Substance: PSEUDOEPHEDRINE
     Indication: Product used for unknown indication
     Route: 065
  9. ROSUVASTATIN [Concomitant]
     Active Substance: ROSUVASTATIN
     Indication: Product used for unknown indication
  10. VENLAFAXINE [Suspect]
     Active Substance: VENLAFAXINE HYDROCHLORIDE
     Indication: Myalgia
     Route: 065
  11. VENLAFAXINE [Suspect]
     Active Substance: VENLAFAXINE HYDROCHLORIDE
     Indication: Hypertension
  12. DICLOFENAC [Suspect]
     Active Substance: DICLOFENAC
     Indication: Myalgia
     Route: 065
  13. ACETAMINOPHEN/GUAIFENESIN/PHENYLEPHRINE HYDROCHLORIDE [Concomitant]
     Indication: Product used for unknown indication
     Route: 065
  14. HYDROMORPHONE [Concomitant]
     Active Substance: HYDROMORPHONE
     Indication: Myalgia
     Route: 065
  15. RANITIDINE HYDROCHLORIDE [Concomitant]
     Active Substance: RANITIDINE HYDROCHLORIDE
     Indication: Gastrointestinal disorder
  16. CHLORPHENIRAMINE [Suspect]
     Active Substance: CHLORPHENIRAMINE
     Indication: Hypertension
  17. OMEPRAZOLE [Suspect]
     Active Substance: OMEPRAZOLE
     Indication: Gastrointestinal disorder

REACTIONS (5)
  - Urinary retention [Unknown]
  - Vitamin B12 decreased [Unknown]
  - Gastrointestinal disorder [Unknown]
  - Hypertension [Unknown]
  - Myalgia [Unknown]
